FAERS Safety Report 6043825-1 (Version None)
Quarter: 2009Q1

REPORT INFORMATION
  Report Type: 
  Country: None (occurrence: None)
  Receive Date: 20090120
  Receipt Date: 20090111
  Transmission Date: 20090719
  Serious: Yes (Other)
  Sender: FDA-Public Use
  Company Number: US-AMGEN-QUU327863

PATIENT
  Sex: Female

DRUGS (25)
  1. ARANESP [Suspect]
     Indication: ANAEMIA
     Route: 065
  2. MULTI-VITAMINS [Concomitant]
  3. ASCORBIC ACID [Concomitant]
  4. LISINOPRIL [Concomitant]
  5. SPIRONOLACTONE [Concomitant]
  6. PROTONIX [Concomitant]
  7. SENNA [Concomitant]
  8. MAGNESIUM SULFATE [Concomitant]
  9. FLUDROCORTISONE ACETATE [Concomitant]
  10. CLONIDINE [Concomitant]
  11. AMBIEN [Concomitant]
  12. CALCIUM [Concomitant]
  13. VITAMIN D [Concomitant]
  14. ALPRAZOLAM [Concomitant]
  15. LEXAPRO [Concomitant]
  16. POTASSIUM CHLORIDE [Concomitant]
  17. LASIX [Concomitant]
  18. HYDROCORTISONE [Concomitant]
  19. GABAPENTIN [Concomitant]
  20. METOPROLOL TARTRATE [Concomitant]
  21. CALCITONIN SALMON [Concomitant]
  22. LEVOTHYROXINE SODIUM [Concomitant]
  23. LANTUS [Concomitant]
  24. METHADONE HCL [Concomitant]
  25. IRON [Concomitant]

REACTIONS (2)
  - DEEP VEIN THROMBOSIS [None]
  - INTERNATIONAL NORMALISED RATIO INCREASED [None]
